FAERS Safety Report 5166595-8 (Version None)
Quarter: 2006Q4

REPORT INFORMATION
  Report Type: 
  Country: None (occurrence: None)
  Receive Date: 20061207
  Receipt Date: 20061129
  Transmission Date: 20070319
  Serious: Yes (Hospitalization, Other)
  Sender: FDA-Public Use
  Company Number: US-AVENTIS-200619676US

PATIENT
  Sex: Female

DRUGS (5)
  1. ARAVA [Suspect]
     Indication: RHEUMATOID ARTHRITIS
     Dates: start: 20061018, end: 20061113
  2. HUMIRA [Concomitant]
     Dosage: DOSE: UNK
  3. LIPITOR [Concomitant]
     Dosage: DOSE: UNK
  4. GLUCOPHAGE [Concomitant]
     Dosage: DOSE: UNK
  5. SYNTHROID [Concomitant]
     Dosage: DOSE: UNK

REACTIONS (3)
  - BLINDNESS UNILATERAL [None]
  - MIGRAINE [None]
  - SUBARACHNOID HAEMORRHAGE [None]
